FAERS Safety Report 9529991 (Version 2)
Quarter: 2013Q3

REPORT INFORMATION
  Report Type: Report from Study
  Country: BR (occurrence: BR)
  Receive Date: 20130917
  Receipt Date: 20130917
  Transmission Date: 20140515
  Serious: Yes (Death)
  Sender: FDA-Public Use
  Company Number: BR-ABBVIE-13P-020-1145050-00

PATIENT
  Age: 76 Year
  Sex: Male
  Weight: 81 kg

DRUGS (12)
  1. HUMIRA [Suspect]
     Indication: RHEUMATOID ARTHRITIS
     Route: 058
     Dates: start: 201210, end: 201306
  2. LOSARTAN [Concomitant]
     Indication: BLOOD PRESSURE ABNORMAL
     Route: 048
     Dates: start: 201308
  3. PONDERA [Concomitant]
     Indication: ANXIETY
     Route: 048
     Dates: start: 201303
  4. HYDROCHLOROTHIAZIDE [Concomitant]
     Indication: PRODUCT USED FOR UNKNOWN INDICATION
     Dosage: HALF TABLET PER DAY
     Route: 048
     Dates: start: 201308
  5. CARVEDILOL [Concomitant]
     Indication: CARDIAC DISORDER
     Route: 048
     Dates: start: 201308
  6. OMEPRAZOLE [Concomitant]
     Indication: GASTRIC DISORDER
     Route: 048
     Dates: start: 201308
  7. BUDESONIDE [Concomitant]
     Indication: PULMONARY CONGESTION
     Dosage: FORM OF ADMINISTRATION - POWDER, TWICE DAILY
     Route: 045
  8. MONOCORDIL [Concomitant]
     Indication: PRODUCT USED FOR UNKNOWN INDICATION
  9. SIMVASTATIN [Concomitant]
     Indication: PRODUCT USED FOR UNKNOWN INDICATION
  10. ATENOLOL [Concomitant]
     Indication: PRODUCT USED FOR UNKNOWN INDICATION
     Route: 048
  11. AAS [Concomitant]
     Indication: PRODUCT USED FOR UNKNOWN INDICATION
  12. COLLAGEN HYDROLYSATE (MOBILITY) [Concomitant]
     Indication: PRODUCT USED FOR UNKNOWN INDICATION
     Dosage: FORM OF ADMINISTRATION: SATCHET

REACTIONS (4)
  - Death [Fatal]
  - Fall [Unknown]
  - Tendon rupture [Unknown]
  - Osteoarthritis [Unknown]
